FAERS Safety Report 7590719-6 (Version None)
Quarter: 2011Q3

REPORT INFORMATION
  Report Type: 
  Country: None (occurrence: None)
  Receive Date: 20110705
  Receipt Date: 20110701
  Transmission Date: 20111222
  Serious: Yes (Other)
  Sender: FDA-Public Use
  Company Number: US-CEPHALON-US023741

PATIENT

DRUGS (1)
  1. TIAGABINE HCL [Suspect]
     Dosage: 20-24 MG
     Route: 063

REACTIONS (2)
  - EXPOSURE DURING BREAST FEEDING [None]
  - TOXICITY TO VARIOUS AGENTS [None]
